FAERS Safety Report 7086481-6 (Version None)
Quarter: 2010Q4

REPORT INFORMATION
  Report Type: 
  Country: None (occurrence: None)
  Receive Date: 20101105
  Receipt Date: 20101026
  Transmission Date: 20110411
  Serious: Yes (Hospitalization)
  Sender: FDA-Public Use
  Company Number: US-CELGENEUS-163-20785-10100115

PATIENT
  Sex: Male

DRUGS (3)
  1. THALOMID [Suspect]
     Route: 048
     Dates: start: 20100210
  2. COUMADIN [Concomitant]
     Route: 065
  3. LOVENOX [Concomitant]
     Route: 065

REACTIONS (1)
  - CYSTITIS [None]
